FAERS Safety Report 9102479 (Version 1)
Quarter: 2013Q1

REPORT INFORMATION
  Report Type: Spontaneous
  Country: ES (occurrence: ES)
  Receive Date: 20130219
  Receipt Date: 20130219
  Transmission Date: 20140127
  Serious: Yes (Other)
  Sender: FDA-Public Use
  Company Number: ES-ABBOTT-13P-144-1049202-00

PATIENT
  Age: 61 Year
  Sex: Female

DRUGS (5)
  1. CYCLOSPORINE [Suspect]
     Indication: ANTIBIOTIC PROPHYLAXIS
     Route: 048
  2. ISONIAZID [Suspect]
     Indication: ANTIBIOTIC PROPHYLAXIS
  3. VALPROIC ACID [Concomitant]
     Indication: EPILEPSY
  4. PHENYTOIN [Concomitant]
     Indication: EPILEPSY
  5. CARBAMAZEPINE [Concomitant]
     Indication: EPILEPSY

REACTIONS (3)
  - Hepatic encephalopathy [Recovered/Resolved]
  - Acute hepatic failure [Recovered/Resolved]
  - Skin lesion [Recovered/Resolved]
